FAERS Safety Report 26215409 (Version 1)
Quarter: 2025Q4

REPORT INFORMATION
  Report Type: Spontaneous
  Country: EG (occurrence: EG)
  Receive Date: 20251231
  Receipt Date: 20251231
  Transmission Date: 20260118
  Serious: Yes (Life-Threatening, Hospitalization, Other)
  Sender: HIKMA
  Company Number: EG-HIKMA PHARMACEUTICALS-EG-H14001-25-13813

PATIENT
  Age: 55 Year
  Sex: Male
  Weight: 90 kg

DRUGS (11)
  1. CISPLATIN [Suspect]
     Active Substance: CISPLATIN
     Indication: Nasopharyngeal cancer
     Dosage: 100 MILLIGRAM, 3W (DOSE 1)
  2. CISPLATIN [Suspect]
     Active Substance: CISPLATIN
     Dosage: 100 MILLIGRAM, 3W (DOSE TWO) (DAY ONE)
     Dates: start: 20250906
  3. DOCETAXEL [Suspect]
     Active Substance: DOCETAXEL
     Indication: Nasopharyngeal cancer
     Dosage: 100 MILLIGRAM, 3W (DOSE 1)
  4. DOCETAXEL [Suspect]
     Active Substance: DOCETAXEL
     Dosage: 100 MILLIGRAM, 3W (DOSE TWO) (OVER 90 MINUTES, DAY ONE)
     Dates: start: 20250906
  5. FLUOROURACIL [Suspect]
     Active Substance: FLUOROURACIL
     Indication: Nasopharyngeal cancer
     Dosage: 1700 MILLIGRAM, 3W (DOSE 1)
  6. FLUOROURACIL [Suspect]
     Active Substance: FLUOROURACIL
     Dosage: 1700 MILLIGRAM, 3W (DOSE TWO, OVER 24 HOURS FROM DAY ONE TO FOR))
     Dates: start: 20250906
  7. DEXAMETHASONE [Concomitant]
     Active Substance: DEXAMETHASONE
     Indication: Chemotherapy side effect prophylaxis
     Dosage: UNK, OVER 30 MINUTES
  8. EMEX [BACITRACIN;NEOMYCIN SULFATE;POLYMYXIN B SULFATE] [Concomitant]
     Indication: Chemotherapy side effect prophylaxis
     Dosage: UNK, OVER 30 MINUTES
  9. LASIPHAR [Concomitant]
     Indication: Premedication
     Dosage: UNK, OVER ONE HOUR
  10. POTASSIUM CHLORIDE [Concomitant]
     Active Substance: POTASSIUM CHLORIDE
     Indication: Premedication
     Dosage: UNK, OVER TWO HOURS
  11. MAGNESIUM SULFATE [Concomitant]
     Active Substance: MAGNESIUM SULFATE
     Indication: Premedication
     Dosage: UNK, OVER TWO HOURS

REACTIONS (7)
  - Lymphopenia [Recovered/Resolved]
  - Hyponatraemia [Recovered/Resolved]
  - Hypokalaemia [Recovered/Resolved]
  - Diarrhoea [Unknown]
  - Pyrexia [Unknown]
  - Neutropenia [Recovered/Resolved]
  - Leukopenia [Recovered/Resolved]

NARRATIVE: CASE EVENT DATE: 20250915
